FAERS Safety Report 18574493 (Version 1)
Quarter: 2020Q4

REPORT INFORMATION
  Report Type: Spontaneous
  Country: US (occurrence: US)
  Receive Date: 20201203
  Receipt Date: 20201203
  Transmission Date: 20210114
  Serious: No
  Sender: FDA-Public Use
  Company Number: US-AMNEAL PHARMACEUTICALS-2020-AMRX-00325

PATIENT
  Sex: Female
  Weight: 51.24 kg

DRUGS (5)
  1. PROMETHAZINE [Concomitant]
     Active Substance: PROMETHAZINE HYDROCHLORIDE
     Indication: ABDOMINAL DISCOMFORT
     Dosage: 25 MILLIGRAM, 4 /DAY
     Route: 065
  2. RANITIDINE. [Suspect]
     Active Substance: RANITIDINE
     Indication: HIATUS HERNIA
     Dosage: 1 TABLETS, DAILY
     Route: 048
     Dates: start: 2014, end: 201911
  3. MECLIZINE [Concomitant]
     Active Substance: MECLIZINE HYDROCHLORIDE
     Indication: ABDOMINAL DISCOMFORT
     Dosage: 25 MILLIGRAM, 3 /DAY
     Route: 065
  4. MODAFINIL. [Concomitant]
     Active Substance: MODAFINIL
     Indication: SLEEP DISORDER
     Dosage: 200 MILLIGRAM, QD
     Route: 065
  5. ALPRAZOLAM. [Concomitant]
     Active Substance: ALPRAZOLAM
     Indication: ANXIETY
     Dosage: 2 MILLIGRAM, 5 /DAY
     Route: 065

REACTIONS (4)
  - Decreased appetite [Not Recovered/Not Resolved]
  - Renal disorder [Not Recovered/Not Resolved]
  - Gastrointestinal disorder [Not Recovered/Not Resolved]
  - Weight decreased [Not Recovered/Not Resolved]
